FAERS Safety Report 14941245 (Version 3)
Quarter: 2018Q2

REPORT INFORMATION
  Report Type: Spontaneous
  Country: US (occurrence: US)
  Receive Date: 20180525
  Receipt Date: 20180627
  Transmission Date: 20180711
  Serious: No
  Sender: FDA-Public Use
  Company Number: US-JNJFOC-20180436724

PATIENT
  Age: 89 Year
  Sex: Female
  Weight: 49.44 kg

DRUGS (1)
  1. TYLENOL EXTRA STRENGTH [Suspect]
     Active Substance: ACETAMINOPHEN
     Indication: CANCER PAIN
     Route: 048
     Dates: start: 20180425

REACTIONS (3)
  - Product packaging issue [Unknown]
  - Product use in unapproved indication [Unknown]
  - Product package associated injury [Recovering/Resolving]

NARRATIVE: CASE EVENT DATE: 20180425
